FAERS Safety Report 7919835-3 (Version None)
Quarter: 2011Q4

REPORT INFORMATION
  Report Type: 
  Country: None (occurrence: None)
  Receive Date: 20111117
  Receipt Date: 20111117
  Transmission Date: 20120403
  Serious: Yes (Hospitalization)
  Sender: FDA-Public Use
  Company Number: None

PATIENT
  Age: 14 Year
  Sex: Female
  Weight: 27.215 kg

DRUGS (1)
  1. RISPERDAL [Suspect]
     Dosage: 25 MG.
     Route: 048
     Dates: start: 20110422, end: 20110430

REACTIONS (2)
  - ABDOMINAL PAIN UPPER [None]
  - SKIN ODOUR ABNORMAL [None]
